FAERS Safety Report 22222857 (Version 1)
Quarter: 2023Q2

REPORT INFORMATION
  Report Type: Spontaneous
  Country: US (occurrence: US)
  Receive Date: 20230418
  Receipt Date: 20230418
  Transmission Date: 20230722
  Serious: No
  Sender: FDA-Public Use
  Company Number: US-JNJFOC-20230424954

PATIENT
  Age: 76 Year
  Sex: Female

DRUGS (4)
  1. TYLENOL [Suspect]
     Active Substance: ACETAMINOPHEN
     Indication: Product used for unknown indication
     Route: 065
  2. RINVOQ [Suspect]
     Active Substance: UPADACITINIB
     Indication: Rheumatoid arthritis
     Route: 048
     Dates: start: 20220730
  3. ADVIL [Suspect]
     Active Substance: IBUPROFEN
     Indication: Product used for unknown indication
     Route: 065
  4. PRAVASTATIN [Concomitant]
     Active Substance: PRAVASTATIN
     Indication: Product used for unknown indication
     Route: 065

REACTIONS (12)
  - Pyrexia [Unknown]
  - Nasopharyngitis [Unknown]
  - Influenza [Unknown]
  - Abdominal pain upper [Unknown]
  - Joint range of motion decreased [Unknown]
  - Arthritis [Unknown]
  - Decreased appetite [Unknown]
  - Tooth disorder [Unknown]
  - Dysgeusia [Unknown]
  - Alopecia [Unknown]
  - Weight increased [Unknown]
  - Unevaluable event [Unknown]

NARRATIVE: CASE EVENT DATE: 20221201
